FAERS Safety Report 8023737-4 (Version None)
Quarter: 2012Q1

REPORT INFORMATION
  Report Type: 
  Country: None (occurrence: None)
  Receive Date: 20120103
  Receipt Date: 20120103
  Transmission Date: 20120608
  Serious: Yes (Hospitalization)
  Sender: FDA-Public Use
  Company Number: None

PATIENT
  Age: 76 Year
  Sex: Male
  Weight: 101.8 kg

DRUGS (1)
  1. NAPROXEN [Suspect]
     Indication: PAIN
     Dosage: 500 MG BID
     Dates: start: 20110908, end: 20111101

REACTIONS (5)
  - GASTRIC HAEMORRHAGE [None]
  - GASTRITIS EROSIVE [None]
  - GASTRIC ULCER [None]
  - DUODENAL ULCER [None]
  - OESOPHAGITIS [None]
